FAERS Safety Report 12372968 (Version 5)
Quarter: 2017Q2

REPORT INFORMATION
  Report Type: Report from Study
  Country: GB (occurrence: GB)
  Receive Date: 20160516
  Receipt Date: 20170503
  Transmission Date: 20170830
  Serious: Yes (Hospitalization, Other)
  Sender: FDA-Public Use
  Company Number: GB-OTSUKA-2016_010479

PATIENT
  Age: 2 Year
  Sex: Male
  Weight: 16 kg

DRUGS (42)
  1. PARACETAMOL [Concomitant]
     Active Substance: ACETAMINOPHEN
     Indication: FEBRILE NEUTROPENIA
     Dosage: 230 MG, 4 IN 1 DAY
     Route: 048
     Dates: start: 20140127
  2. ONDANSETRON [Concomitant]
     Active Substance: ONDANSETRON
     Dosage: 3 MG, 2 IN 1 DAY
     Route: 065
     Dates: start: 20140210, end: 20140214
  3. AMBISOME [Concomitant]
     Active Substance: AMPHOTERICIN B
     Indication: ANTIFUNGAL PROPHYLAXIS
     Dosage: 16 MG, 3 IN 1 WEEK
     Route: 042
     Dates: end: 20140210
  4. TEICOPLANIN [Concomitant]
     Active Substance: TEICOPLANIN
     Dosage: 150 MG, IN 1 DAY
     Route: 065
     Dates: start: 20140303, end: 20140303
  5. VANCOMYCIN [Concomitant]
     Active Substance: VANCOMYCIN
     Dosage: 390 MG, 3 IN 1 DAY
     Route: 065
     Dates: start: 20140226, end: 20140301
  6. *CYTARABINE [Suspect]
     Active Substance: CYTARABINE
     Indication: ACUTE MYELOID LEUKAEMIA
     Dosage: 0.68 G, 1 IN 1 DAY
     Route: 042
     Dates: start: 20140203, end: 20140207
  7. DEXAMETHASONE. [Concomitant]
     Active Substance: DEXAMETHASONE
     Indication: NAUSEA
     Dosage: 1 MG, 3 IN 1 DAY
     Route: 048
     Dates: start: 20140127
  8. TEICOPLANIN [Concomitant]
     Active Substance: TEICOPLANIN
     Dosage: 150 MG, 2 IN 1 DAY
     Route: 065
     Dates: start: 20140301, end: 20140302
  9. VANCOMYCIN [Concomitant]
     Active Substance: VANCOMYCIN
     Dosage: 260 MG, 3 IN 1 DAY
     Route: 065
     Dates: start: 20140217, end: 20140219
  10. VANCOMYCIN [Concomitant]
     Active Substance: VANCOMYCIN
     Dosage: 290 MG, 3 IN 1 DAY
     Route: 065
     Dates: start: 20140219, end: 20140220
  11. MEROPENEM. [Concomitant]
     Active Substance: MEROPENEM
     Indication: FEBRILE NEUTROPENIA
     Dosage: 300 MG, 3 IN 1 DAY
     Route: 042
     Dates: start: 20140218, end: 20140228
  12. FLUCLOXACILLIN [Concomitant]
     Active Substance: FLUCLOXACILLIN
     Indication: SKIN EXFOLIATION
     Dosage: 190 MG, 4 IN 1 DAY
     Route: 065
     Dates: start: 20140308, end: 20140313
  13. AMBISOME [Concomitant]
     Active Substance: AMPHOTERICIN B
     Dosage: 47 MG, 1 IN 1 DAY
     Route: 065
     Dates: start: 20140211, end: 20140222
  14. AMBISOME [Concomitant]
     Active Substance: AMPHOTERICIN B
     Dosage: 15 MG, 3 IN 1 WEEK
     Route: 065
     Dates: start: 20140305, end: 20140312
  15. TAZOCIN (PIP/TAZO) [Concomitant]
     Active Substance: PIPERACILLIN SODIUM\TAZOBACTAM SODIUM
     Indication: FEBRILE NEUTROPENIA
     Dosage: 1.4 G, 4 IN 1 DAY
     Route: 042
     Dates: start: 20140209, end: 20140212
  16. VANCOMYCIN [Concomitant]
     Active Substance: VANCOMYCIN
     Indication: FEBRILE NEUTROPENIA
     Dosage: 235 MG, 3 IN 1 DAY
     Route: 042
     Dates: start: 20140215, end: 20140217
  17. ETOPOSIDE. [Concomitant]
     Active Substance: ETOPOSIDE
     Indication: CHEMOTHERAPY
     Dosage: 1.56 G
     Route: 042
  18. CHLORPHENIRAMINE. [Concomitant]
     Active Substance: CHLORPHENIRAMINE
     Indication: ALLERGIC TRANSFUSION REACTION
     Dosage: 2.5 MG, 1 IN
     Route: 042
     Dates: start: 20140127
  19. BETAMETHASONE. [Concomitant]
     Active Substance: BETAMETHASONE
     Indication: PROPHYLAXIS
     Dosage: 1 DOSE (S), 1 IN 1 DAY
     Route: 061
     Dates: start: 20140203
  20. DECITABINE. [Suspect]
     Active Substance: DECITABINE
     Indication: ACUTE MYELOID LEUKAEMIA
     Dosage: 13.6 MG, 1 IN 1 DAY FOR 5 DAYS
     Route: 042
     Dates: start: 20140127, end: 20140131
  21. DECITABINE. [Suspect]
     Active Substance: DECITABINE
     Dosage: UNK
     Route: 042
     Dates: start: 20140203, end: 20160207
  22. CEFTAZIDIME. [Concomitant]
     Active Substance: CEFTAZIDIME
     Indication: PYREXIA
     Dosage: 785 MG, 3 IN 1 DAY
     Route: 042
     Dates: start: 20140127, end: 20140130
  23. CHLORPHENIRAMINE. [Concomitant]
     Active Substance: CHLORPHENIRAMINE
     Dosage: 2.5 MG, 1 IN
     Route: 042
     Dates: start: 20140209
  24. ALLOPURINOL. [Concomitant]
     Active Substance: ALLOPURINOL
     Indication: PROPHYLAXIS
     Dosage: 150 MG, 1 IN 1 DAY
     Route: 048
     Dates: start: 20140127, end: 20140130
  25. CIPROFLOXACIN. [Concomitant]
     Active Substance: CIPROFLOXACIN
     Indication: FEBRILE NEUTROPENIA
     Dosage: 150 MG, 3 IN 1 DAY
     Route: 042
     Dates: start: 20140218, end: 20140228
  26. AMBISOME [Concomitant]
     Active Substance: AMPHOTERICIN B
     Dosage: 15 MG, IN 1 DAY
     Route: 065
     Dates: start: 20140228, end: 20140303
  27. AMILORIDE [Concomitant]
     Active Substance: AMILORIDE
     Indication: HYPOKALAEMIA
     Dosage: 1.5 MG, 2 IN 1 DAY
     Route: 048
     Dates: start: 20140216, end: 20140216
  28. AMILORIDE [Concomitant]
     Active Substance: AMILORIDE
     Dosage: 2.5 MG, IN 1 DAY
     Route: 048
     Dates: start: 20140217, end: 20140226
  29. TEICOPLANIN [Concomitant]
     Active Substance: TEICOPLANIN
     Dosage: 150 MG, IN 1 DAY
     Route: 065
     Dates: start: 20140206, end: 20140215
  30. VANCOMYCIN [Concomitant]
     Active Substance: VANCOMYCIN
     Dosage: 320 MG, 3 IN 1 DAY
     Route: 065
     Dates: start: 20140220, end: 20140223
  31. ONDANSETRON [Concomitant]
     Active Substance: ONDANSETRON
     Indication: NAUSEA
     Dosage: 3 MG, 3 IN 1 DAY
     Route: 048
     Dates: start: 20140127, end: 20140209
  32. AMBISOME [Concomitant]
     Active Substance: AMPHOTERICIN B
     Dosage: 50 MG, IN 1 DAY
     Route: 065
     Dates: start: 20140224, end: 20140227
  33. VANCOMYCIN [Concomitant]
     Active Substance: VANCOMYCIN
     Dosage: 350 MG, 3 IN 1 DAY
     Route: 065
     Dates: start: 20140223, end: 20140226
  34. FLUCLOXACILLIN [Concomitant]
     Active Substance: FLUCLOXACILLIN
     Indication: SKIN HYPERPIGMENTATION
     Dosage: 125 MG, 4 IN 1 DAY
     Route: 048
     Dates: start: 20140306, end: 20140308
  35. CYCLOPHOSPHAMIDE. [Concomitant]
     Active Substance: CYCLOPHOSPHAMIDE
     Indication: CHEMOTHERAPY
     Dosage: 1.3 G
     Route: 042
     Dates: start: 20140228, end: 20140304
  36. GENTAMICIN. [Concomitant]
     Active Substance: GENTAMICIN
     Indication: PYREXIA
     Dosage: 110 MG
     Route: 042
     Dates: start: 20140127, end: 20140129
  37. PARACETAMOL [Concomitant]
     Active Substance: ACETAMINOPHEN
     Indication: PYREXIA
  38. CHLORPHENIRAMINE. [Concomitant]
     Active Substance: CHLORPHENIRAMINE
     Indication: ALLERGIC TRANSFUSION REACTION
     Dosage: 1 MG, 1 IN 1 DAY
     Route: 048
     Dates: start: 20140212, end: 20140212
  39. PREDNISOLONE. [Concomitant]
     Active Substance: PREDNISOLONE
     Indication: PROPHYLAXIS
     Dosage: 2 DOSES(S)
     Route: 061
     Dates: start: 20140203, end: 20140209
  40. POTASSIUM CHLORIDE. [Concomitant]
     Active Substance: POTASSIUM CHLORIDE
     Indication: HYPOKALAEMIA
     Dosage: 5 DOSE (S), 3 IN 1 DAY
     Route: 048
     Dates: start: 20140216, end: 20140227
  41. TEICOPLANIN [Concomitant]
     Active Substance: TEICOPLANIN
     Indication: FEBRILE NEUTROPENIA
     Dosage: 150 MG, 2 IN 1 DAY
     Route: 042
     Dates: start: 20140204, end: 20140205
  42. FLUCLOXACILLIN [Concomitant]
     Active Substance: FLUCLOXACILLIN
     Indication: FEBRILE NEUTROPENIA

REACTIONS (3)
  - Skin hyperpigmentation [Recovering/Resolving]
  - Skin exfoliation [Recovered/Resolved]
  - Febrile neutropenia [Recovered/Resolved]

NARRATIVE: CASE EVENT DATE: 20140201
